FAERS Safety Report 9946116 (Version 2)
Quarter: 2014Q1

REPORT INFORMATION
  Report Type: Spontaneous
  Country: DE (occurrence: DE)
  Receive Date: 20140303
  Receipt Date: 20140303
  Transmission Date: 20141002
  Serious: Yes (Life-Threatening, Hospitalization, Other)
  Sender: FDA-Public Use
  Company Number: PHHY2013DE143018

PATIENT
  Sex: Male

DRUGS (2)
  1. LEPONEX [Suspect]
     Indication: SCHIZOPHRENIA
     Dosage: 200 MG, QD
     Dates: end: 201311
  2. SEROQUEL [Concomitant]
     Indication: SCHIZOPHRENIA
     Dosage: UNK UKN, UNK

REACTIONS (7)
  - Blood creatine phosphokinase increased [Recovered/Resolved]
  - C-reactive protein increased [Recovering/Resolving]
  - Blood lactate dehydrogenase increased [Recovered/Resolved]
  - Aspartate aminotransferase increased [Recovered/Resolved]
  - Alanine aminotransferase increased [Recovered/Resolved]
  - Blood creatine phosphokinase MB increased [Recovering/Resolving]
  - Hypersomnia [Recovered/Resolved]
